FAERS Safety Report 5420660-6 (Version None)
Quarter: 2007Q3

REPORT INFORMATION
  Report Type: 
  Country: None (occurrence: None)
  Receive Date: 20070816
  Receipt Date: 20070720
  Transmission Date: 20080115
  Serious: Yes (Death, Life-Threatening)
  Sender: FDA-Public Use
  Company Number: 2007US001807

PATIENT
  Age: 50 Year
  Sex: Male

DRUGS (1)
  1. PROGRAF [Suspect]
     Indication: PROPHYLAXIS AGAINST TRANSPLANT REJECTION

REACTIONS (3)
  - GASTROINTESTINAL HAEMORRHAGE [None]
  - SEPSIS [None]
  - SPLENECTOMY [None]
